FAERS Safety Report 20001044 (Version 2)
Quarter: 2021Q4

REPORT INFORMATION
  Report Type: Spontaneous
  Country: US (occurrence: US)
  Receive Date: 20211027
  Receipt Date: 20211109
  Transmission Date: 20220303
  Serious: Yes (Other)
  Sender: FDA-Public Use
  Company Number: US-VERICEL-US-VCEL-21-000188

PATIENT

DRUGS (1)
  1. MACI [Suspect]
     Active Substance: AUTOLOGOUS CULTURED CHONDROCYTES\SUS SCROFA COLLAGEN
     Indication: Product used for unknown indication
     Dosage: 1 DOSAGE FORM, QN
     Route: 050
     Dates: start: 20181029

REACTIONS (2)
  - Transplant failure [Unknown]
  - Pain [Unknown]
